FAERS Safety Report 9137114 (Version 1)
Quarter: 2013Q1

REPORT INFORMATION
  Report Type: Spontaneous
  Country: US (occurrence: US)
  Receive Date: 20130219
  Receipt Date: 20130219
  Transmission Date: 20140127
  Serious: No
  Sender: FDA-Public Use
  Company Number: US-BRISTOL-MYERS SQUIBB COMPANY-16802670

PATIENT
  Age: 42 Year
  Sex: Female
  Weight: 52.15 kg

DRUGS (9)
  1. ABATACEPT SUBQ INJECTION 125MG/ML [Suspect]
     Indication: RHEUMATOID ARTHRITIS
     Route: 058
     Dates: start: 20120724
  2. METHOTREXATE [Concomitant]
  3. PREDNISONE [Concomitant]
  4. SYNTHROID [Concomitant]
  5. YAZ [Concomitant]
  6. TOPROL [Concomitant]
  7. CARTIA [Concomitant]
  8. VITAMINS [Concomitant]
  9. TAGAMET [Concomitant]

REACTIONS (1)
  - Headache [Not Recovered/Not Resolved]
